FAERS Safety Report 10271229 (Version 2)
Quarter: 2014Q3

REPORT INFORMATION
  Report Type: Report from Study
  Country: ES (occurrence: ES)
  Receive Date: 20140701
  Receipt Date: 20140709
  Transmission Date: 20150326
  Serious: Yes (Other)
  Sender: FDA-Public Use
  Company Number: ES-GILEAD-2014-0106700

PATIENT
  Age: 28 Year
  Sex: Female

DRUGS (5)
  1. AMBRISENTAN [Suspect]
     Active Substance: AMBRISENTAN
     Indication: PULMONARY ARTERIAL HYPERTENSION
     Dosage: 5 MG, QD
     Route: 048
     Dates: start: 201303, end: 201403
  2. EPOPROSTENOL [Concomitant]
     Active Substance: EPOPROSTENOL
  3. TREPROSTINIL [Concomitant]
     Active Substance: TREPROSTINIL
     Route: 058
  4. TREPROSTINIL [Concomitant]
     Active Substance: TREPROSTINIL
     Route: 058
  5. SILDENAFIL [Concomitant]
     Active Substance: SILDENAFIL

REACTIONS (5)
  - Hepatocellular injury [Unknown]
  - Cholestasis [Unknown]
  - Rheumatic disorder [Unknown]
  - Hepatic enzyme increased [Unknown]
  - Cardiac failure congestive [Unknown]

NARRATIVE: CASE EVENT DATE: 201403
